FAERS Safety Report 8247093-1 (Version None)
Quarter: 2012Q1

REPORT INFORMATION
  Report Type: 
  Country: None (occurrence: None)
  Receive Date: 20120329
  Receipt Date: 20120329
  Transmission Date: 20120608
  Serious: Yes (Other)
  Sender: FDA-Public Use
  Company Number: None

PATIENT
  Sex: Female
  Weight: 66.6788 kg

DRUGS (2)
  1. NORGESTIMATE AND ETHINYL ESTRADIOL [Suspect]
  2. TRI-SPRINTEC [Suspect]

REACTIONS (3)
  - NAUSEA [None]
  - HEADACHE [None]
  - PRODUCT SUBSTITUTION ISSUE [None]
